FAERS Safety Report 24559779 (Version 1)
Quarter: 2024Q4

REPORT INFORMATION
  Report Type: Spontaneous
  Country: IE (occurrence: IE)
  Receive Date: 20241029
  Receipt Date: 20241029
  Transmission Date: 20250114
  Serious: Yes (Other)
  Sender: Haleon PLC
  Company Number: None

PATIENT
  Age: 71 Year
  Sex: Female
  Weight: 68.1 kg

DRUGS (2)
  1. EXCEDRIN [Suspect]
     Active Substance: ACETAMINOPHEN\ASPIRIN\CAFFEINE
     Indication: Migraine
     Dosage: 1-2 TABLETS EVERY 4-6 HOURS, 250/250/65 MILLIGRAM
     Route: 048
     Dates: start: 20240903
  2. Eltroxin 25 microgram Tablets [Concomitant]
     Indication: Product used for unknown indication
     Dosage: STRENGTH 25 MICROGRAM
     Route: 048

REACTIONS (5)
  - Speech disorder [Recovered/Resolved]
  - Chills [Recovered/Resolved]
  - Amnesia [Recovered/Resolved]
  - Loss of personal independence in daily activities [Recovered/Resolved]
  - Asthenia [Recovered/Resolved]

NARRATIVE: CASE EVENT DATE: 20240903
